FAERS Safety Report 4819157-3 (Version None)
Quarter: 2005Q4

REPORT INFORMATION
  Report Type: 
  Country: None (occurrence: None)
  Receive Date: 20051102
  Receipt Date: 20051102
  Transmission Date: 20060501
  Serious: Yes (Hospitalization)
  Sender: FDA-Public Use
  Company Number: None

PATIENT
  Sex: Female
  Weight: 42.1845 kg

DRUGS (1)
  1. ORTHO EVRA [Suspect]
     Dosage: 1 PATCH   WEEKLY   TRANSDERMA
     Route: 062
     Dates: start: 20050925, end: 20051010

REACTIONS (5)
  - ABDOMINAL PAIN [None]
  - BLADDER SPASM [None]
  - BLOOD URINE PRESENT [None]
  - NAUSEA [None]
  - NEPHROLITHIASIS [None]
